FAERS Safety Report 24429132 (Version 1)
Quarter: 2024Q4

REPORT INFORMATION
  Report Type: Spontaneous
  Country: CA (occurrence: CA)
  Receive Date: 20241011
  Receipt Date: 20241011
  Transmission Date: 20250115
  Serious: Yes (Life-Threatening, Hospitalization)
  Sender: PFIZER
  Company Number: CA-PFIZER INC-202400273529

PATIENT
  Age: 63 Day
  Sex: Female
  Weight: 3 kg

DRUGS (7)
  1. ROCURONIUM BROMIDE [Suspect]
     Active Substance: ROCURONIUM BROMIDE
     Dosage: UNK
  2. FENTANYL [Suspect]
     Active Substance: FENTANYL
     Dosage: UNK
  3. PROPOFOL [Suspect]
     Active Substance: PROPOFOL
     Indication: Induction of anaesthesia
     Dosage: 8 MG, SINGLE
     Route: 042
  4. SEVOFLURANE [Suspect]
     Active Substance: SEVOFLURANE
     Dosage: UNK
  5. MINERALS\VITAMINS [Concomitant]
     Active Substance: MINERALS\VITAMINS
     Dosage: UNK
  6. FERROUS SULFATE [Concomitant]
     Active Substance: FERROUS SULFATE
     Dosage: UNK
  7. LEVOTHYROXINE [Concomitant]
     Active Substance: LEVOTHYROXINE
     Dosage: UNK

REACTIONS (3)
  - Heart rate increased [Recovered/Resolved]
  - Hypotension [Recovered/Resolved]
  - Off label use [Unknown]
